FAERS Safety Report 19670237 (Version 1)
Quarter: 2021Q3

REPORT INFORMATION
  Report Type: Spontaneous
  Country: DE (occurrence: DE)
  Receive Date: 20210806
  Receipt Date: 20210806
  Transmission Date: 20211014
  Serious: Yes (Other)
  Sender: FDA-Public Use
  Company Number: DE-BAUSCH-BL-2021-021577

PATIENT
  Age: 34 Year
  Sex: Female

DRUGS (1)
  1. TIMO EDO 0.5% [Suspect]
     Active Substance: TIMOLOL MALEATE
     Indication: INTRAOCULAR PRESSURE INCREASED
     Dosage: IN BOTH EYES, 3,5 YEARS
     Route: 047
     Dates: start: 2018, end: 2021

REACTIONS (5)
  - Stress [Unknown]
  - Nasopharyngitis [Unknown]
  - Surgery [Unknown]
  - Total lung capacity decreased [Unknown]
  - Asthma [Unknown]

NARRATIVE: CASE EVENT DATE: 2021
